FAERS Safety Report 7799524-9 (Version None)
Quarter: 2011Q4

REPORT INFORMATION
  Report Type: 
  Country: None (occurrence: None)
  Receive Date: 20111006
  Receipt Date: 20111006
  Transmission Date: 20120403
  Serious: Yes (Hospitalization, Other)
  Sender: FDA-Public Use
  Company Number: None

PATIENT
  Age: 36 Year
  Sex: Male
  Weight: 66.678 kg

DRUGS (2)
  1. CEPHALEXIN [Suspect]
     Indication: POSTOPERATIVE CARE
     Dosage: 10
     Route: 048
     Dates: start: 20110314, end: 20110324
  2. CEPHALEXIN [Suspect]
     Indication: LACERATION
     Dosage: 10
     Route: 048
     Dates: start: 20110314, end: 20110324

REACTIONS (9)
  - ABDOMINAL DISCOMFORT [None]
  - DECREASED APPETITE [None]
  - GASTROINTESTINAL DISORDER [None]
  - BEDRIDDEN [None]
  - FLATULENCE [None]
  - HEART RATE INCREASED [None]
  - SKIN EXFOLIATION [None]
  - WEIGHT DECREASED [None]
  - ASTHENIA [None]
